FAERS Safety Report 13261635 (Version 4)
Quarter: 2017Q3

REPORT INFORMATION
  Report Type: Spontaneous
  Country: DE (occurrence: DE)
  Receive Date: 20170222
  Receipt Date: 20170807
  Transmission Date: 20171127
  Serious: Yes (Life-Threatening, Other)
  Sender: FDA-Public Use
  Company Number: PHHY2017DE027057

PATIENT
  Age: 5 Year
  Sex: Female
  Weight: 24 kg

DRUGS (4)
  1. ORFIRIL [Concomitant]
     Active Substance: VALPROIC ACID
     Indication: EPILEPSY
     Dosage: 900 MG, QD
     Route: 048
  2. LAMOTRIGIN [Concomitant]
     Active Substance: LAMOTRIGINE
     Indication: EPILEPSY
     Dosage: 80 MG, QD (2 DF, QD)
     Route: 048
  3. VOTUBIA [Suspect]
     Active Substance: EVEROLIMUS
     Indication: EPILEPSY
     Dosage: 7.5 MG, QD
     Route: 048
     Dates: start: 2014, end: 20170106
  4. SABRIL [Concomitant]
     Active Substance: VIGABATRIN
     Indication: EPILEPSY
     Dosage: 2000 MG, QD (2 DF QD)
     Route: 048

REACTIONS (35)
  - Pneumococcal sepsis [Recovering/Resolving]
  - Pneumonia [Unknown]
  - Tachypnoea [Unknown]
  - Acute respiratory distress syndrome [Recovering/Resolving]
  - Pneumonia pneumococcal [Recovering/Resolving]
  - Epistaxis [Unknown]
  - Sedation [Unknown]
  - Pharyngeal haemorrhage [Unknown]
  - General physical health deterioration [Unknown]
  - Pyrexia [Unknown]
  - Haemoptysis [Unknown]
  - Immune system disorder [Unknown]
  - Hyperglycaemia [Unknown]
  - Pallor [Unknown]
  - Muscle spasticity [Unknown]
  - Anaemia [Recovering/Resolving]
  - Pneumothorax [Unknown]
  - Oral herpes [Unknown]
  - Circulatory collapse [Unknown]
  - Dyspnoea [Unknown]
  - Epilepsy [Unknown]
  - Conjunctivitis [Unknown]
  - Cholestasis [Unknown]
  - Pneumocystis jirovecii infection [Unknown]
  - Anxiety [Unknown]
  - Cough [Unknown]
  - Pleural effusion [Unknown]
  - Respiratory tract infection [Unknown]
  - Peripheral coldness [Unknown]
  - Cyanosis [Unknown]
  - Toxicity to various agents [Recovering/Resolving]
  - Depressed level of consciousness [Unknown]
  - Systemic inflammatory response syndrome [Recovering/Resolving]
  - Thrombocytopenia [Recovering/Resolving]
  - Ophthalmic herpes simplex [Unknown]

NARRATIVE: CASE EVENT DATE: 20170106
